FAERS Safety Report 10029877 (Version 1)
Quarter: 2014Q1

REPORT INFORMATION
  Report Type: Spontaneous
  Country: US (occurrence: None)
  Receive Date: 20140304
  Receipt Date: 20140304
  Transmission Date: 20141002
  Serious: Yes (Other)
  Sender: FDA-Public Use
  Company Number: RB-30755-2011

PATIENT
  Age: 43 Year
  Sex: Female

DRUGS (5)
  1. SUBOXONE [Suspect]
     Indication: DRUG DEPENDENCE
     Route: 060
     Dates: start: 201104, end: 201105
  2. SUBOXONE [Suspect]
     Indication: DRUG DEPENDENCE
     Route: 060
     Dates: start: 201105, end: 20110722
  3. LEXAPRO [Concomitant]
  4. EFFEXOR [Concomitant]
  5. LAMICTAL [Concomitant]

REACTIONS (5)
  - Tongue ulceration [None]
  - Pharyngeal oedema [None]
  - Glossodynia [None]
  - Lymphadenopathy [None]
  - Lymph node pain [None]
